FAERS Safety Report 7687286-5 (Version None)
Quarter: 2011Q3

REPORT INFORMATION
  Report Type: 
  Country: None (occurrence: None)
  Receive Date: 20110816
  Receipt Date: 20110812
  Transmission Date: 20111222
  Serious: Yes (Other)
  Sender: FDA-Public Use
  Company Number: BR-PFIZER INC-2011186896

PATIENT
  Age: 73 Year
  Sex: Female
  Weight: 86 kg

DRUGS (2)
  1. VARENICLINE TARTRATE [Suspect]
     Dosage: 1 MG, 2X/DAY
     Route: 048
     Dates: start: 20110101
  2. VARENICLINE TARTRATE [Suspect]
     Indication: TOBACCO USER
     Dosage: UNK
     Route: 048
     Dates: start: 20110718, end: 20110101

REACTIONS (4)
  - DIARRHOEA [None]
  - BLOOD GLUCOSE INCREASED [None]
  - IMMOBILE [None]
  - MUSCULAR WEAKNESS [None]
